FAERS Safety Report 5847869-1 (Version None)
Quarter: 2008Q3

REPORT INFORMATION
  Report Type: 
  Country: None (occurrence: None)
  Receive Date: 20080814
  Receipt Date: 20080814
  Transmission Date: 20090109
  Serious: Yes (Death, Hospitalization)
  Sender: FDA-Public Use
  Company Number: None

PATIENT
  Sex: Male
  Weight: 92.5338 kg

DRUGS (4)
  1. SIMVASTATIN [Suspect]
     Indication: BLOOD CHOLESTEROL INCREASED
     Dosage: 80 MG. 1/DAY PO
     Route: 048
     Dates: start: 20080228, end: 20080321
  2. METFORMIN HCL [Concomitant]
  3. DIOVAN [Concomitant]
  4. AMLODIPIN BESYLATE [Concomitant]

REACTIONS (9)
  - ABASIA [None]
  - BACK PAIN [None]
  - DIALYSIS [None]
  - HAEMORRHAGE [None]
  - POST PROCEDURAL COMPLICATION [None]
  - PSEUDOMONAS INFECTION [None]
  - RENAL FAILURE [None]
  - RHABDOMYOLYSIS [None]
  - TRANSFUSION-TRANSMITTED INFECTIOUS DISEASE [None]
